FAERS Safety Report 4493972-0 (Version None)
Quarter: 2004Q4

REPORT INFORMATION
  Report Type: 
  Country: None (occurrence: None)
  Receive Date: 20041102
  Receipt Date: 20041018
  Transmission Date: 20050328
  Serious: Yes (Other)
  Sender: FDA-Public Use
  Company Number: USA041081321

PATIENT
  Age: 51 Year
  Sex: Female
  Weight: 64 kg

DRUGS (3)
  1. HUMULIN 70/30 [Suspect]
     Dosage: 50 U DAY
  2. HUMULIN R [Suspect]
     Dates: start: 19880101
  3. HUMULIN L [Suspect]
     Dates: start: 19980101

REACTIONS (2)
  - CEREBROVASCULAR ACCIDENT [None]
  - VISUAL DISTURBANCE [None]
